FAERS Safety Report 6646754-5 (Version None)
Quarter: 2010Q1

REPORT INFORMATION
  Report Type: 
  Country: None (occurrence: None)
  Receive Date: 20100323
  Receipt Date: 20100303
  Transmission Date: 20100710
  Serious: Yes (Death)
  Sender: FDA-Public Use
  Company Number: FR-CEPHALON-2010001605

PATIENT
  Sex: Female

DRUGS (3)
  1. TREANDA [Suspect]
     Indication: CHRONIC LYMPHOCYTIC LEUKAEMIA
     Dates: start: 20081111, end: 20081112
  2. TREANDA [Suspect]
     Dates: start: 20081215, end: 20081216
  3. MABTHERA [Suspect]
     Dates: start: 20080101

REACTIONS (2)
  - DEATH [None]
  - HAEMATOTOXICITY [None]
